FAERS Safety Report 7534806-7 (Version None)
Quarter: 2011Q2

REPORT INFORMATION
  Report Type: 
  Country: None (occurrence: None)
  Receive Date: 20110609
  Receipt Date: 20080808
  Transmission Date: 20111010
  Serious: Yes (Hospitalization, Other)
  Sender: FDA-Public Use
  Company Number: PHHO2008JP09560

PATIENT
  Sex: Male
  Weight: 74 kg

DRUGS (8)
  1. BETAMETHASONE [Concomitant]
     Indication: POST PROCEDURAL INFECTION
  2. GLEEVEC [Suspect]
     Indication: GASTROINTESTINAL STROMAL TUMOUR
     Dosage: 400 MG, QD
     Route: 048
     Dates: start: 20060711
  3. PURSENNID [Concomitant]
     Indication: CONSTIPATION PROPHYLAXIS
  4. MAGNESIUM OXIDE [Concomitant]
     Indication: CONSTIPATION PROPHYLAXIS
  5. SELBEX [Concomitant]
     Indication: GASTRITIS PROPHYLAXIS
  6. CEFDINIR [Concomitant]
     Indication: INFECTION PROPHYLAXIS
  7. GLEEVEC [Suspect]
     Dosage: NO TREATMENT
  8. LEVOFLOXACIN [Concomitant]
     Indication: INFECTION PROPHYLAXIS

REACTIONS (8)
  - VITREOUS DETACHMENT [None]
  - RETINAL HAEMORRHAGE [None]
  - BLINDNESS [None]
  - VITREOUS HAEMORRHAGE [None]
  - ABNORMAL SENSATION IN EYE [None]
  - DIABETIC RETINOPATHY [None]
  - DIABETES MELLITUS [None]
  - VISUAL ACUITY REDUCED [None]
